FAERS Safety Report 11628949 (Version 1)
Quarter: 2015Q4

REPORT INFORMATION
  Report Type: Spontaneous
  Country: US (occurrence: None)
  Receive Date: 20151013
  Receipt Date: 20151013
  Transmission Date: 20160304
  Serious: Yes (Life-Threatening, Hospitalization)
  Sender: FDA-Public Use
  Company Number: None

PATIENT
  Age: 69 Year
  Sex: Male
  Weight: 96.5 kg

DRUGS (1)
  1. ALLOPURINOL. [Suspect]
     Active Substance: ALLOPURINOL
     Indication: GOUT
     Route: 048
     Dates: start: 20150713, end: 20150731

REACTIONS (14)
  - Nausea [None]
  - Malaise [None]
  - Fatigue [None]
  - Decreased appetite [None]
  - Panic attack [None]
  - Pain in extremity [None]
  - Arthropod bite [None]
  - Hypophagia [None]
  - Night sweats [None]
  - Dysgeusia [None]
  - Tachycardia [None]
  - Anxiety [None]
  - Sepsis [None]
  - Rash [None]

NARRATIVE: CASE EVENT DATE: 20150731
